FAERS Safety Report 11501418 (Version 1)
Quarter: 2015Q3

REPORT INFORMATION
  Report Type: Spontaneous
  Country: TH (occurrence: TH)
  Receive Date: 20150914
  Receipt Date: 20150914
  Transmission Date: 20151125
  Serious: Yes (Hospitalization)
  Sender: FDA-Public Use
  Company Number: TH-ELI_LILLY_AND_COMPANY-TH201509003123

PATIENT
  Age: 65 Year
  Sex: Female

DRUGS (3)
  1. VITAMIN D [Suspect]
     Active Substance: CHOLECALCIFEROL
     Dosage: UNK
     Dates: start: 20150904
  2. CALCIUM [Concomitant]
     Active Substance: CALCIUM
     Dosage: UNK
     Dates: start: 20150904
  3. FORTEO [Suspect]
     Active Substance: TERIPARATIDE
     Indication: OSTEOPOROSIS
     Dosage: 20 UG, QD
     Route: 058
     Dates: start: 20150904, end: 20150908

REACTIONS (3)
  - Lethargy [Recovered/Resolved]
  - Blood calcium abnormal [Unknown]
  - Speech disorder [Recovered/Resolved]

NARRATIVE: CASE EVENT DATE: 20150908
